FAERS Safety Report 7548137-2 (Version None)
Quarter: 2011Q2

REPORT INFORMATION
  Report Type: 
  Country: None (occurrence: None)
  Receive Date: 20110615
  Receipt Date: 20110525
  Transmission Date: 20111010
  Serious: Yes (Hospitalization, Other)
  Sender: FDA-Public Use
  Company Number: US-BAYER-2010-002062

PATIENT
  Age: 16 Year
  Sex: Female

DRUGS (3)
  1. YAZ [Suspect]
     Indication: PREMENSTRUAL SYNDROME
  2. YAZ [Suspect]
     Indication: CONTRACEPTION
  3. YAZ [Suspect]
     Indication: ACNE
     Dosage: UNK
     Route: 048
     Dates: start: 19990101, end: 20100101

REACTIONS (7)
  - PAIN [None]
  - MENORRHAGIA [None]
  - ABDOMINAL PAIN [None]
  - GALLBLADDER DISORDER [None]
  - DEEP VEIN THROMBOSIS [None]
  - HEADACHE [None]
  - HAEMORRHAGIC ANAEMIA [None]
